FAERS Safety Report 5797857-9 (Version None)
Quarter: 2008Q2

REPORT INFORMATION
  Report Type: 
  Country: None (occurrence: None)
  Receive Date: 20080630
  Receipt Date: 20080624
  Transmission Date: 20081010
  Serious: Yes (Death, Other)
  Sender: FDA-Public Use
  Company Number: 2008001398

PATIENT
  Age: 46 Year
  Sex: Male

DRUGS (1)
  1. TARCEVA [Suspect]
     Indication: LUNG ADENOCARCINOMA
     Dosage: (150 MG,QD), ORAL
     Route: 048
     Dates: start: 20080514

REACTIONS (9)
  - DISEASE PROGRESSION [None]
  - DRUG INEFFECTIVE [None]
  - GASTRIC HAEMORRHAGE [None]
  - HAEMOPTYSIS [None]
  - OCCULT BLOOD POSITIVE [None]
  - OEDEMA [None]
  - ONYCHOCLASIS [None]
  - PRURITUS [None]
  - RASH PUSTULAR [None]
